FAERS Safety Report 20741094 (Version 1)
Quarter: 2022Q2

REPORT INFORMATION
  Report Type: Report from Study
  Country: US (occurrence: None)
  Receive Date: 20220422
  Receipt Date: 20220422
  Transmission Date: 20220721
  Serious: Yes (Other)
  Sender: FDA-Public Use
  Company Number: 2022A154926

PATIENT
  Sex: Female

DRUGS (1)
  1. FASENRA [Suspect]
     Active Substance: BENRALIZUMAB
     Indication: Asthma
     Dosage: 30 MG/ML, EVERY 4 WEEKS FOR THE FIRST 3 DOSES, THEN EVERY EIGHT WEEKS THEREAFTER
     Route: 058
     Dates: start: 20220224

REACTIONS (1)
  - Fall [Not Recovered/Not Resolved]
